FAERS Safety Report 13675601 (Version 1)
Quarter: 2017Q2

REPORT INFORMATION
  Report Type: Report from Study
  Country: US (occurrence: US)
  Receive Date: 20170621
  Receipt Date: 20170621
  Transmission Date: 20170830
  Serious: Yes (Hospitalization, Disabling)
  Sender: FDA-Public Use
  Company Number: US-CELGENEUS-USA-20170604220

PATIENT
  Age: 78 Year
  Sex: Female
  Weight: 63.9 kg

DRUGS (15)
  1. MM-141 (ISTIRATUMAB) [Suspect]
     Active Substance: ISTIRATUMAB
     Dosage: 2.8 GRAM
     Route: 041
     Dates: end: 20151020
  2. DEXAMETHASONE. [Concomitant]
     Active Substance: DEXAMETHASONE
     Indication: PRODUCT USED FOR UNKNOWN INDICATION
     Route: 065
     Dates: start: 20150511
  3. CYPROHEPTADINE HYDROCHLORIDE. [Concomitant]
     Active Substance: CYPROHEPTADINE HYDROCHLORIDE
     Indication: PRODUCT USED FOR UNKNOWN INDICATION
     Route: 065
     Dates: start: 20151105
  4. ABRAXANE [Suspect]
     Active Substance: PACLITAXEL
     Indication: PANCREATIC CARCINOMA METASTATIC
     Dosage: 210 MILLIGRAM
     Route: 041
     Dates: start: 20150909
  5. ABRAXANE [Suspect]
     Active Substance: PACLITAXEL
     Dosage: 210 MILLIGRAM
     Route: 041
     Dates: start: 20151110
  6. GEMCITABINE [Suspect]
     Active Substance: GEMCITABINE\GEMCITABINE HYDROCHLORIDE
     Dosage: 1673 MILLIGRAM
     Route: 041
     Dates: start: 20151110
  7. MM-141 (ISTIRATUMAB) [Suspect]
     Active Substance: ISTIRATUMAB
     Indication: PANCREATIC CARCINOMA METASTATIC
     Dosage: 2.8 GRAM
     Route: 041
     Dates: start: 20150909
  8. RAMIPRIL. [Concomitant]
     Active Substance: RAMIPRIL
     Indication: PRODUCT USED FOR UNKNOWN INDICATION
     Route: 065
     Dates: start: 20151019
  9. ABRAXANE [Suspect]
     Active Substance: PACLITAXEL
     Dosage: 210 MILLIGRAM
     Route: 041
     Dates: end: 20151020
  10. MM-141 (ISTIRATUMAB) [Suspect]
     Active Substance: ISTIRATUMAB
     Dosage: 2.8 GRAM
     Route: 041
     Dates: start: 20151110
  11. TRAMADOL HYDROCHLORIDE. [Concomitant]
     Active Substance: TRAMADOL HYDROCHLORIDE
     Indication: PRODUCT USED FOR UNKNOWN INDICATION
     Route: 065
     Dates: start: 20150511
  12. LOPERAMIDE HYDROCHLORIDE. [Concomitant]
     Active Substance: LOPERAMIDE HYDROCHLORIDE
     Indication: CLOSTRIDIUM DIFFICILE INFECTION
     Route: 065
  13. GEMCITABINE [Suspect]
     Active Substance: GEMCITABINE\GEMCITABINE HYDROCHLORIDE
     Indication: PANCREATIC CARCINOMA METASTATIC
     Dosage: 1673 MILLIGRAM
     Route: 041
     Dates: start: 20150909
  14. GEMCITABINE [Suspect]
     Active Substance: GEMCITABINE\GEMCITABINE HYDROCHLORIDE
     Dosage: 1673 MILLIGRAM
     Route: 041
     Dates: end: 20151020
  15. ALENDRONATE SODIUM. [Concomitant]
     Active Substance: ALENDRONATE SODIUM
     Indication: PRODUCT USED FOR UNKNOWN INDICATION
     Route: 065
     Dates: start: 20150928

REACTIONS (4)
  - Hyperglycaemia [Recovered/Resolved]
  - Asthenia [Recovered/Resolved]
  - Fall [Recovering/Resolving]
  - Asthenia [Recovered/Resolved]

NARRATIVE: CASE EVENT DATE: 20151022
